FAERS Safety Report 17371382 (Version 3)
Quarter: 2020Q2

REPORT INFORMATION
  Report Type: Report from Study
  Country: US (occurrence: US)
  Receive Date: 20200205
  Receipt Date: 20200506
  Transmission Date: 20200713
  Serious: Yes (Other)
  Sender: FDA-Public Use
  Company Number: US-CLOVIS ONCOLOGY-CLO-2020-000008

PATIENT
  Sex: Female

DRUGS (1)
  1. RUBRACA [Suspect]
     Active Substance: RUCAPARIB CAMSYLATE
     Indication: OVARIAN CANCER
     Dosage: 600 MG, BID
     Route: 048
     Dates: start: 20191206

REACTIONS (10)
  - Paraesthesia [Unknown]
  - Skin laceration [Unknown]
  - Dry skin [Recovering/Resolving]
  - Nasopharyngitis [Unknown]
  - Neuropathy peripheral [Recovering/Resolving]
  - Peripheral swelling [Unknown]
  - Rash [Unknown]
  - Fatigue [Recovering/Resolving]
  - Hyperaesthesia [Unknown]
  - Dysphagia [Unknown]
